FAERS Safety Report 12896851 (Version 1)
Quarter: 2016Q4

REPORT INFORMATION
  Report Type: Spontaneous
  Country: CA (occurrence: CA)
  Receive Date: 20161031
  Receipt Date: 20161031
  Transmission Date: 20170207
  Serious: Yes (Other)
  Sender: FDA-Public Use
  Company Number: CA-ASTRAZENECA-2016SF09979

PATIENT
  Sex: Female

DRUGS (3)
  1. METOPROLOL. [Concomitant]
     Active Substance: METOPROLOL
  2. METOPROLOL. [Concomitant]
     Active Substance: METOPROLOL
  3. BRILINTA [Suspect]
     Active Substance: TICAGRELOR
     Indication: MYOCARDIAL INFARCTION
     Dosage: 90.0MG UNKNOWN
     Route: 048

REACTIONS (14)
  - Epistaxis [Recovered/Resolved]
  - Cough [Recovered/Resolved]
  - Chest pain [Recovered/Resolved]
  - Nasal injury [Unknown]
  - Heart rate irregular [Unknown]
  - Muscular weakness [Unknown]
  - Pain in extremity [Recovered/Resolved]
  - Dizziness [Unknown]
  - Erythema [Unknown]
  - Hypoaesthesia [Unknown]
  - Urticaria [Unknown]
  - Rash [Recovered/Resolved]
  - Contusion [Recovered/Resolved]
  - Pruritus generalised [Unknown]
